FAERS Safety Report 7584911-4 (Version None)
Quarter: 2011Q2

REPORT INFORMATION
  Report Type: 
  Country: None (occurrence: None)
  Receive Date: 20110630
  Receipt Date: 20110616
  Transmission Date: 20111010
  Serious: Yes (Other)
  Sender: FDA-Public Use
  Company Number: GB-GENENTECH-315097

PATIENT
  Sex: Female

DRUGS (5)
  1. LUCENTIS [Suspect]
     Dosage: UNK
     Route: 031
     Dates: start: 20100604, end: 20100604
  2. LUCENTIS [Suspect]
     Dosage: UNK
     Route: 031
     Dates: start: 20091204, end: 20091204
  3. LUCENTIS [Suspect]
     Dosage: UNK
     Route: 031
     Dates: start: 20100130, end: 20100130
  4. LUCENTIS [Suspect]
     Indication: PRODUCT USED FOR UNKNOWN INDICATION
     Dosage: UNK
     Route: 031
     Dates: start: 20090918, end: 20090918
  5. LUCENTIS [Suspect]
     Dosage: UNK
     Route: 031
     Dates: start: 20091030, end: 20091030

REACTIONS (2)
  - CEREBROVASCULAR ACCIDENT [None]
  - AORTIC VALVE STENOSIS [None]
